FAERS Safety Report 21997953 (Version 3)
Quarter: 2023Q1

REPORT INFORMATION
  Report Type: Spontaneous
  Country: US (occurrence: US)
  Receive Date: 20230216
  Receipt Date: 20230329
  Transmission Date: 20230418
  Serious: Yes (Other)
  Sender: FDA-Public Use
  Company Number: US-AUROBINDO-AUR-APL-2023-006794

PATIENT
  Age: 37 Year
  Sex: Male

DRUGS (5)
  1. GABAPENTIN [Suspect]
     Active Substance: GABAPENTIN
     Indication: Drug use disorder
     Dosage: 12 GRAM, ONCE A DAY
     Route: 065
  2. GABAPENTIN [Suspect]
     Active Substance: GABAPENTIN
     Dosage: 300 MILLIGRAM
     Route: 065
  3. CODEINE [Concomitant]
     Active Substance: CODEINE
     Indication: Neck pain
     Dosage: UNK
     Route: 065
  4. ACETAMINOPHEN\CODEINE PHOSPHATE [Concomitant]
     Active Substance: ACETAMINOPHEN\CODEINE PHOSPHATE
     Indication: Neck pain
     Dosage: 2?4 TABLETS PER DAY
     Route: 065
  5. ACETAMINOPHEN\CODEINE PHOSPHATE [Concomitant]
     Active Substance: ACETAMINOPHEN\CODEINE PHOSPHATE
     Dosage: 40 TABLETS PER DAY
     Route: 065

REACTIONS (25)
  - Drug dependence [Unknown]
  - Toxicity to various agents [Unknown]
  - Drug withdrawal syndrome [Unknown]
  - Increased appetite [Unknown]
  - Ataxia [Unknown]
  - Dizziness [Unknown]
  - Somnolence [Unknown]
  - Confusional state [Unknown]
  - Coordination abnormal [Unknown]
  - Asthenia [Unknown]
  - Fatigue [Unknown]
  - Depression [Unknown]
  - Movement disorder [Unknown]
  - Irritability [Unknown]
  - Back pain [Unknown]
  - Nervousness [Unknown]
  - Restlessness [Unknown]
  - Flank pain [Unknown]
  - Hyperhidrosis [Unknown]
  - Nocturia [Unknown]
  - Insomnia [Unknown]
  - Diarrhoea [Unknown]
  - Palpitations [Unknown]
  - Polyuria [Unknown]
  - Intentional product misuse [Unknown]
